FAERS Safety Report 14940652 (Version 1)
Quarter: 2018Q2

REPORT INFORMATION
  Report Type: Spontaneous
  Country: BR (occurrence: BR)
  Receive Date: 20180525
  Receipt Date: 20180525
  Transmission Date: 20180711
  Serious: Yes (Death, Hospitalization, Other)
  Sender: FDA-Public Use
  Company Number: BR-IMPAX LABORATORIES, INC-2018-IPXL-01060

PATIENT
  Age: 22 Year
  Sex: Female

DRUGS (8)
  1. CEFTRIAXONE. [Suspect]
     Active Substance: CEFTRIAXONE
     Indication: ANTIBIOTIC THERAPY
     Dosage: UNK
     Route: 065
  2. BROMOCRIPTINE [Suspect]
     Active Substance: BROMOCRIPTINE
     Indication: NEUROLEPTIC MALIGNANT SYNDROME
     Dosage: UNK
     Route: 065
  3. OXYGEN. [Concomitant]
     Active Substance: OXYGEN
     Indication: DYSPNOEA
     Dosage: 4 L, EVERY MIN VIA NASAL CATHETER
     Route: 045
  4. METOCLOPRAMIDE HYDROCHLORIDE IR [Suspect]
     Active Substance: METOCLOPRAMIDE HYDROCHLORIDE
     Indication: HYPEREMESIS GRAVIDARUM
     Dosage: 10 MG, EVERY 8HR
     Route: 065
  5. FOLIC ACID. [Suspect]
     Active Substance: FOLIC ACID
     Indication: HYPEREMESIS GRAVIDARUM
     Dosage: 5 MG, DAILY
     Route: 065
  6. DIMENHYDRINATE;PYRIDOXINE [Suspect]
     Active Substance: DIMENHYDRINATE\PYRIDOXINE
     Indication: HYPEREMESIS GRAVIDARUM
     Dosage: UNK
     Route: 065
  7. DANTROLENE SODIUM. [Suspect]
     Active Substance: DANTROLENE SODIUM
     Indication: NEUROLEPTIC MALIGNANT SYNDROME
     Dosage: UNK
     Route: 065
  8. DANTROLENE SODIUM. [Suspect]
     Active Substance: DANTROLENE SODIUM
     Indication: PRODUCT USE IN UNAPPROVED INDICATION

REACTIONS (11)
  - Metabolic acidosis [Unknown]
  - Renal failure [Fatal]
  - Hepatic enzyme increased [Unknown]
  - Haemodynamic instability [Fatal]
  - Foetal death [Unknown]
  - Respiratory failure [Unknown]
  - Neuroleptic malignant syndrome [Fatal]
  - Maternal exposure during pregnancy [Unknown]
  - Anaemia [Unknown]
  - Drug ineffective for unapproved indication [Unknown]
  - Hypernatraemia [Unknown]
